FAERS Safety Report 4345309-5 (Version None)
Quarter: 2004Q2

REPORT INFORMATION
  Report Type: 
  Country: None (occurrence: None)
  Receive Date: 20040423
  Receipt Date: 20040325
  Transmission Date: 20050107
  Serious: Yes (Hospitalization)
  Sender: FDA-Public Use
  Company Number: JP-GLAXOSMITHKLINE-B0328428A

PATIENT
  Age: 25 Year
  Sex: Female

DRUGS (3)
  1. EPIVIR [Suspect]
     Indication: INFECTION PROPHYLAXIS
     Dosage: 150MG TWICE PER DAY
     Route: 048
     Dates: start: 20040203, end: 20040217
  2. RETROVIR [Suspect]
     Indication: INFECTION PROPHYLAXIS
     Dosage: 200MG TWICE PER DAY
     Route: 048
     Dates: start: 20040203, end: 20040217
  3. VIRACEPT [Suspect]
     Indication: INFECTION PROPHYLAXIS
     Dosage: 750MG THREE TIMES PER DAY
     Route: 048
     Dates: start: 20040203, end: 20040217

REACTIONS (5)
  - ALANINE AMINOTRANSFERASE INCREASED [None]
  - ASPARTATE AMINOTRANSFERASE INCREASED [None]
  - BLOOD ALKALINE PHOSPHATASE INCREASED [None]
  - GAMMA-GLUTAMYLTRANSFERASE INCREASED [None]
  - LIVER DISORDER [None]
